FAERS Safety Report 7608145-X (Version None)
Quarter: 2011Q3

REPORT INFORMATION
  Report Type: 
  Country: None (occurrence: None)
  Receive Date: 20110706
  Receipt Date: 20110621
  Transmission Date: 20111222
  Serious: Yes (Hospitalization)
  Sender: FDA-Public Use
  Company Number: PNIS20110003

PATIENT
  Age: 36 Week

DRUGS (2)
  1. PREDNISOLONE [Suspect]
     Indication: MATERNAL EXPOSURE DURING PREGNANCY
     Dosage: 15 MG/ML, TRANSPLACENTAL
     Route: 064
  2. NSAIDS (UNKNOWN) [Suspect]
     Indication: MATERNAL EXPOSURE DURING PREGNANCY
     Dosage: TRANSPLACENTAL
     Route: 064

REACTIONS (6)
  - MATERNAL DRUGS AFFECTING FOETUS [None]
  - TRICUSPID VALVE INCOMPETENCE [None]
  - DILATATION VENTRICULAR [None]
  - DUCTUS ARTERIOSUS PREMATURE CLOSURE [None]
  - CARDIOMEGALY [None]
  - RESPIRATION ABNORMAL [None]
